FAERS Safety Report 4339892-3 (Version None)
Quarter: 2004Q2

REPORT INFORMATION
  Report Type: 
  Country: None (occurrence: None)
  Receive Date: 20040414
  Receipt Date: 20040414
  Transmission Date: 20050107
  Serious: Yes (Hospitalization)
  Sender: FDA-Public Use
  Company Number: None

PATIENT
  Age: 85 Year
  Sex: 0
  Weight: 63 kg

DRUGS (1)
  1. LEVAQUIN [Suspect]
     Indication: PNEUMONIA
     Dosage: 250 MG

REACTIONS (3)
  - NEPHRITIS INTERSTITIAL [None]
  - PRURITUS [None]
  - RASH MACULO-PAPULAR [None]
